FAERS Safety Report 5485323-X (Version None)
Quarter: 2007Q4

REPORT INFORMATION
  Report Type: 
  Country: None (occurrence: None)
  Receive Date: 20071010
  Receipt Date: 20071010
  Transmission Date: 20080405
  Serious: Yes (Other)
  Sender: FDA-Public Use
  Company Number: None

PATIENT
  Age: 6 Year
  Sex: Male
  Weight: 29.4838 kg

DRUGS (2)
  1. GUANFACINE HYDROCHLORIDE [Suspect]
     Indication: ANXIETY
     Dosage: 1/2 TABLET TWICE DAILY PO
     Route: 048
     Dates: start: 20070830, end: 20070913
  2. METADATE CD [Concomitant]

REACTIONS (3)
  - AGGRESSION [None]
  - MANIA [None]
  - THERAPY CESSATION [None]
